FAERS Safety Report 6347413-9 (Version None)
Quarter: 2009Q3

REPORT INFORMATION
  Report Type: 
  Country: None (occurrence: None)
  Receive Date: 20090910
  Receipt Date: 20090902
  Transmission Date: 20100115
  Serious: Yes (Hospitalization)
  Sender: FDA-Public Use
  Company Number: BE-ABBOTT-09P-013-0570429-00

PATIENT
  Sex: Female

DRUGS (4)
  1. HUMIRA [Suspect]
     Indication: PSORIATIC ARTHROPATHY
     Route: 058
  2. METHOTREXATE SODIUM [Concomitant]
     Indication: DRUG USE FOR UNKNOWN INDICATION
     Dosage: 6 CO
  3. METHOTREXATE SODIUM [Concomitant]
     Dosage: 2 CO
  4. METHOTREXATE SODIUM [Concomitant]
     Dosage: 6 CO
     Dates: start: 20090801

REACTIONS (4)
  - DEPRESSION [None]
  - MENTAL DISORDER [None]
  - SKIN EROSION [None]
  - TREATMENT NONCOMPLIANCE [None]
